FAERS Safety Report 4334993-8 (Version None)
Quarter: 2004Q2

REPORT INFORMATION
  Report Type: 
  Country: None (occurrence: None)
  Receive Date: 20040408
  Receipt Date: 20040329
  Transmission Date: 20050107
  Serious: Yes (Hospitalization)
  Sender: FDA-Public Use
  Company Number: DE-ROCHE-363338

PATIENT
  Age: 53 Year

DRUGS (4)
  1. INTERFERON ALFA-2A [Suspect]
     Route: 065
  2. PROLEUKIN [Suspect]
     Route: 065
  3. NEORECORMON [Suspect]
     Route: 065
  4. FLUOROURACIL [Suspect]
     Route: 065

REACTIONS (2)
  - HYPOXIC ENCEPHALOPATHY [None]
  - VENTRICULAR FIBRILLATION [None]
